FAERS Safety Report 25499528 (Version 1)
Quarter: 2025Q2

REPORT INFORMATION
  Report Type: Spontaneous
  Country: US (occurrence: None)
  Receive Date: 20250628
  Receipt Date: 20250628
  Transmission Date: 20250717
  Serious: Yes (Other)
  Sender: FDA-CTU
  Company Number: None

PATIENT
  Age: 29 Year
  Sex: Female
  Weight: 73.8 kg

DRUGS (6)
  1. ZYRTEC [Suspect]
     Active Substance: CETIRIZINE HYDROCHLORIDE
     Indication: Multiple allergies
     Dosage: 1 TABLET DAILY ORAL
     Route: 048
  2. KIRKLAND SIGNATURE ALLER TEC ALLERGY [Suspect]
     Active Substance: CETIRIZINE HYDROCHLORIDE
  3. COLLAGEN [Concomitant]
     Active Substance: COLLAGEN
  4. hair vitamins [Concomitant]
  5. multi daily vitamins [Concomitant]
  6. sea moss [Concomitant]

REACTIONS (1)
  - Mechanical urticaria [None]

NARRATIVE: CASE EVENT DATE: 20250623
